FAERS Safety Report 4967443-9 (Version None)
Quarter: 2006Q2

REPORT INFORMATION
  Report Type: 
  Country: None (occurrence: None)
  Receive Date: 20060407
  Receipt Date: 20060407
  Transmission Date: 20061013
  Serious: Yes (Hospitalization)
  Sender: FDA-Public Use
  Company Number: None

PATIENT
  Age: 57 Year
  Sex: Male
  Weight: 55.41 kg

DRUGS (2)
  1. MORPHINE SULFATE [Suspect]
     Indication: PAIN
     Dosage: PO
  2. ALPRAZOLAM [Suspect]
     Indication: ANXIETY
     Dosage: PO
     Route: 048

REACTIONS (5)
  - DYSKINESIA [None]
  - EYE ROLLING [None]
  - INCONTINENCE [None]
  - MENTAL STATUS CHANGES [None]
  - PNEUMONIA [None]
